FAERS Safety Report 7744641-2 (Version None)
Quarter: 2011Q3

REPORT INFORMATION
  Report Type: 
  Country: None (occurrence: None)
  Receive Date: 20110912
  Receipt Date: 20110829
  Transmission Date: 20111222
  Serious: Yes (Other)
  Sender: FDA-Public Use
  Company Number: PHHY2011BR77787

PATIENT
  Sex: Male

DRUGS (2)
  1. GALVUS MET [Suspect]
     Dosage: UNK DF (850/50MG), UNK
  2. DIOVAN [Suspect]
     Dosage: 160 MG, UNK

REACTIONS (4)
  - RENAL DISORDER [None]
  - BLOOD PRESSURE DECREASED [None]
  - BLOOD GLUCOSE FLUCTUATION [None]
  - INFARCTION [None]
